FAERS Safety Report 18752917 (Version 1)
Quarter: 2021Q1

REPORT INFORMATION
  Report Type: Spontaneous
  Country: US (occurrence: US)
  Receive Date: 20210118
  Receipt Date: 20210118
  Transmission Date: 20210419
  Serious: No
  Sender: FDA-Public Use
  Company Number: US-TEVA-2021-US-1868845

PATIENT

DRUGS (1)
  1. METHYLPHENIDATE HYDROCHLORIDE ACTAVIS [Suspect]
     Active Substance: METHYLPHENIDATE HYDROCHLORIDE
     Route: 065

REACTIONS (6)
  - Thinking abnormal [Unknown]
  - Panic disorder [Unknown]
  - Muscle spasms [Unknown]
  - Diarrhoea [Unknown]
  - Hypersensitivity [Unknown]
  - Heart rate increased [Unknown]
